FAERS Safety Report 7408244-1 (Version None)
Quarter: 2011Q2

REPORT INFORMATION
  Report Type: 
  Country: None (occurrence: None)
  Receive Date: 20110412
  Receipt Date: 20110209
  Transmission Date: 20111010
  Serious: No
  Sender: FDA-Public Use
  Company Number: A0912699A

PATIENT
  Age: 84 Year
  Sex: Male

DRUGS (2)
  1. NO CONCURRENT MEDICATION [Concomitant]
  2. JALYN [Suspect]
     Indication: BENIGN PROSTATIC HYPERPLASIA
     Route: 048
     Dates: start: 20110201

REACTIONS (2)
  - PRURITUS [None]
  - DYSPNOEA [None]
